FAERS Safety Report 20372873 (Version 1)
Quarter: 2022Q1

REPORT INFORMATION
  Report Type: Spontaneous
  Country: None (occurrence: US)
  Receive Date: 20220125
  Receipt Date: 20220125
  Transmission Date: 20220423
  Serious: Yes (Hospitalization, Other)
  Sender: FDA-Public Use
  Company Number: US-Lavipharm SA-2124260

PATIENT
  Age: 63 Year
  Sex: Male

DRUGS (10)
  1. CATAPRES-TTS [Suspect]
     Active Substance: CLONIDINE
     Indication: Hypertension
  2. BACLOFEN [Concomitant]
     Active Substance: BACLOFEN
  3. DETROL LA [Concomitant]
     Active Substance: TOLTERODINE TARTRATE
  4. CLONAZEPAM [Concomitant]
     Active Substance: CLONAZEPAM
  5. METOPROLOL TARTRATE [Concomitant]
     Active Substance: METOPROLOL TARTRATE
  6. ATORVASTATIN [Concomitant]
     Active Substance: ATORVASTATIN
  7. LOSARTAN [Concomitant]
     Active Substance: LOSARTAN
  8. Hydrazaline [Concomitant]
  9. ELIQUIS [Concomitant]
     Active Substance: APIXABAN
  10. HYDROCHLOROTHIAZIDE [Concomitant]
     Active Substance: HYDROCHLOROTHIAZIDE

REACTIONS (1)
  - Thrombosis [Recovered/Resolved]

NARRATIVE: CASE EVENT DATE: 20201201
